FAERS Safety Report 10396301 (Version 1)
Quarter: 2014Q3

REPORT INFORMATION
  Report Type: Spontaneous
  Country: US (occurrence: None)
  Receive Date: 20140818
  Receipt Date: 20140818
  Transmission Date: 20150326
  Serious: No
  Sender: FDA-Public Use
  Company Number: None

PATIENT
  Sex: Male

DRUGS (1)
  1. STIVARGA [Suspect]
     Active Substance: REGORAFENIB
     Indication: PRODUCT USED FOR UNKNOWN INDICATION
     Dosage: 21D ON 7D OFF
     Route: 048
     Dates: start: 20140407

REACTIONS (2)
  - Swollen tongue [None]
  - Palmar-plantar erythrodysaesthesia syndrome [None]
